FAERS Safety Report 6148413-4 (Version None)
Quarter: 2009Q2

REPORT INFORMATION
  Report Type: 
  Country: None (occurrence: None)
  Receive Date: 20090406
  Receipt Date: 20090406
  Transmission Date: 20091009
  Serious: Yes (Hospitalization)
  Sender: FDA-Public Use
  Company Number: None

PATIENT
  Age: 28 Year
  Sex: Female
  Weight: 90.7194 kg

DRUGS (2)
  1. YAZ [Suspect]
     Indication: HORMONE LEVEL ABNORMAL
     Dosage: 1 PILL DAILY OTHER
     Route: 050
     Dates: start: 20080612, end: 20090401
  2. YAZ [Suspect]
     Indication: PROGESTERONE
     Dosage: 1 PILL DAILY OTHER
     Route: 050
     Dates: start: 20080612, end: 20090401

REACTIONS (3)
  - ABDOMINAL PAIN [None]
  - PAIN IN EXTREMITY [None]
  - THROMBOSIS [None]
